FAERS Safety Report 9207678 (Version 1)
Quarter: 2013Q2

REPORT INFORMATION
  Report Type: Spontaneous
  Country: US (occurrence: US)
  Receive Date: 20130403
  Receipt Date: 20130403
  Transmission Date: 20140414
  Serious: Yes (Hospitalization)
  Sender: FDA-Public Use
  Company Number: US-BAYER-2013-040043

PATIENT
  Age: 30 Year
  Sex: Female
  Weight: 61 kg

DRUGS (4)
  1. YASMIN [Suspect]
     Indication: CONTRACEPTION
     Dosage: UNK
     Dates: start: 200402, end: 2005
  2. VITAMINS [Concomitant]
     Dosage: UNK
     Dates: start: 20050107
  3. EFFEXOR XR [Concomitant]
     Indication: ANXIETY
     Dosage: UNK
     Dates: start: 200401, end: 200707
  4. VICODIN [Concomitant]

REACTIONS (1)
  - Pulmonary embolism [None]
